FAERS Safety Report 18912555 (Version 1)
Quarter: 2021Q1

REPORT INFORMATION
  Report Type: Spontaneous
  Country: DE (occurrence: DE)
  Receive Date: 20210219
  Receipt Date: 20210219
  Transmission Date: 20210420
  Serious: Yes (Hospitalization, Other)
  Sender: FDA-Public Use
  Company Number: DE-ALKEM LABORATORIES LIMITED-DE-ALKEM-2020-07325

PATIENT
  Age: 29 Year
  Sex: Male
  Weight: 72 kg

DRUGS (16)
  1. MEROPENEM. [Concomitant]
     Active Substance: MEROPENEM
     Indication: TUBERCULOSIS
     Dosage: UNK
     Route: 065
     Dates: start: 2018
  2. AMINOSALICYLIC ACID [Concomitant]
     Active Substance: AMINOSALICYLIC ACID
     Indication: PULMONARY TUBERCULOSIS
  3. TERIZIDONE [Concomitant]
     Active Substance: TERIZIDONE
     Indication: TUBERCULOSIS
     Dosage: UNK
     Route: 065
     Dates: start: 2018
  4. AMOXICILLIN, CLAVULANIC ACID [Concomitant]
     Active Substance: AMOXICILLIN\CLAVULANIC ACID
     Indication: PULMONARY TUBERCULOSIS
  5. LINEZOLID. [Suspect]
     Active Substance: LINEZOLID
     Indication: PULMONARY TUBERCULOSIS
  6. CLOFAZIMINE [Concomitant]
     Active Substance: CLOFAZIMINE
     Indication: PULMONARY TUBERCULOSIS
  7. LINEZOLID. [Suspect]
     Active Substance: LINEZOLID
     Indication: TUBERCULOSIS
     Dosage: 600 MILLIGRAM, BID
     Route: 042
     Dates: start: 20180803, end: 20180914
  8. AMOXICILLIN, CLAVULANIC ACID [Concomitant]
     Active Substance: AMOXICILLIN\CLAVULANIC ACID
     Indication: TUBERCULOSIS
     Dosage: UNK
     Route: 065
     Dates: start: 2018
  9. CLOFAZIMINE [Concomitant]
     Active Substance: CLOFAZIMINE
     Indication: TUBERCULOSIS
     Dosage: UNK
     Route: 065
     Dates: start: 2018
  10. BEDAQUILINE [Concomitant]
     Active Substance: BEDAQUILINE
     Indication: TUBERCULOSIS
     Dosage: UNK
     Route: 065
     Dates: start: 2018
  11. BEDAQUILINE [Concomitant]
     Active Substance: BEDAQUILINE
     Indication: PULMONARY TUBERCULOSIS
  12. AMIKACIN. [Concomitant]
     Active Substance: AMIKACIN
     Indication: TUBERCULOSIS
     Dosage: 1000 MILLIGRAM, QD
     Route: 065
     Dates: start: 20180803, end: 20190128
  13. TERIZIDONE [Concomitant]
     Active Substance: TERIZIDONE
     Indication: PULMONARY TUBERCULOSIS
  14. MEROPENEM. [Concomitant]
     Active Substance: MEROPENEM
     Indication: PULMONARY TUBERCULOSIS
  15. AMIKACIN. [Concomitant]
     Active Substance: AMIKACIN
     Indication: PULMONARY TUBERCULOSIS
  16. AMINOSALICYLIC ACID [Concomitant]
     Active Substance: AMINOSALICYLIC ACID
     Indication: TUBERCULOSIS
     Dosage: UNK
     Route: 048
     Dates: start: 2018

REACTIONS (2)
  - Polyneuropathy [Recovered/Resolved]
  - Myelosuppression [Recovered/Resolved]

NARRATIVE: CASE EVENT DATE: 20180902
